FAERS Safety Report 4643559-1 (Version None)
Quarter: 2005Q2

REPORT INFORMATION
  Report Type: 
  Country: None (occurrence: None)
  Receive Date: 20050331
  Receipt Date: 20050104
  Transmission Date: 20051028
  Serious: No
  Sender: FDA-Public Use
  Company Number: 05P-163-0285333-00

PATIENT
  Age: 66 Year
  Sex: Female
  Weight: 90.7194 kg

DRUGS (9)
  1. HUMIRA [Suspect]
     Indication: RHEUMATOID ARTHRITIS
     Dosage: 40 MG, 1 IN 2 WK, SUBCUTANEOUS
     Route: 058
     Dates: start: 20041213, end: 20041201
  2. FENTANYL [Concomitant]
  3. GABAPENTIN [Concomitant]
  4. SCALACTIN [Concomitant]
  5. LANSOPRAZOLE [Concomitant]
  6. HYDROCODONE BITARTRATE [Concomitant]
  7. PROPRANOLOL [Concomitant]
  8. ALPRAZOLAM [Concomitant]
  9. SYMBRAX [Concomitant]

REACTIONS (5)
  - BACK PAIN [None]
  - BLADDER SPASM [None]
  - NAUSEA [None]
  - PYREXIA [None]
  - SOMNOLENCE [None]
